FAERS Safety Report 5930230-9 (Version None)
Quarter: 2008Q4

REPORT INFORMATION
  Report Type: 
  Country: None (occurrence: None)
  Receive Date: 20081024
  Receipt Date: 20081013
  Transmission Date: 20090506
  Serious: Yes (Other)
  Sender: FDA-Public Use
  Company Number: US-PFIZER INC-2008088018

PATIENT
  Sex: Female
  Weight: 49 kg

DRUGS (10)
  1. CHANTIX [Suspect]
     Indication: SMOKING CESSATION THERAPY
     Dates: start: 20080101
  2. ANTIHYPERTENSIVES [Suspect]
     Indication: BLOOD PRESSURE
     Dates: start: 20080101
  3. VALIUM [Concomitant]
  4. PROZAC [Concomitant]
  5. ELAVIL [Concomitant]
  6. PRINZIDE [Concomitant]
  7. ATENOLOL [Concomitant]
  8. VICODIN [Concomitant]
  9. TYLENOL [Concomitant]
  10. VITAMINS [Concomitant]

REACTIONS (2)
  - DEPRESSION [None]
  - SUICIDAL IDEATION [None]
